FAERS Safety Report 5730238-2 (Version None)
Quarter: 2008Q2

REPORT INFORMATION
  Report Type: 
  Country: None (occurrence: None)
  Receive Date: 20080505
  Receipt Date: 20080505
  Transmission Date: 20081010
  Serious: No
  Sender: FDA-Public Use
  Company Number: None

PATIENT
  Age: 47 Year
  Sex: Female
  Weight: 22.6799 kg

DRUGS (1)
  1. ARIMIDEX [Suspect]
     Dosage: 1 PER DAY

REACTIONS (1)
  - COUGH [None]
